FAERS Safety Report 12297803 (Version 5)
Quarter: 2017Q1

REPORT INFORMATION
  Report Type: Spontaneous
  Country: US (occurrence: US)
  Receive Date: 20160422
  Receipt Date: 20170206
  Transmission Date: 20170428
  Serious: Yes (Other)
  Sender: FDA-Public Use
  Company Number: US-PFIZER INC-2016216916

PATIENT
  Age: 58 Year
  Sex: Male
  Weight: 108.84 kg

DRUGS (15)
  1. KLOR-CON [Concomitant]
     Active Substance: POTASSIUM CHLORIDE
     Dosage: UNK
  2. XELJANZ [Suspect]
     Active Substance: TOFACITINIB CITRATE
     Dosage: 10 MG, 1X/DAY; (5 MG, 2 IN 1 D)
     Route: 048
     Dates: start: 201604
  3. BYSTOLIC [Concomitant]
     Active Substance: NEBIVOLOL HYDROCHLORIDE
     Indication: BLOOD PRESSURE ABNORMAL
     Dosage: 10 MG, 1X/DAY
  4. XANAX [Concomitant]
     Active Substance: ALPRAZOLAM
     Indication: STRESS
     Dosage: 1 MG, AS NEEDED (TWO A DAY)
  5. ZANTAC [Concomitant]
     Active Substance: RANITIDINE HYDROCHLORIDE
     Dosage: AS NEEDED (AS REQUIRED)
  6. MEDROL [Concomitant]
     Active Substance: METHYLPREDNISOLONE
     Indication: STEROID THERAPY
     Dosage: AS NEEDED (AS REQUIRED)
  7. XANAX [Concomitant]
     Active Substance: ALPRAZOLAM
     Dosage: 2 MG, 1X/DAY; (2 IN 1 D)
  8. OXYCONTIN [Concomitant]
     Active Substance: OXYCODONE HYDROCHLORIDE
     Indication: PAIN
     Dosage: 120 MG, 1X/DAY; (3 IN 1 D)
     Dates: start: 2013
  9. XELJANZ [Suspect]
     Active Substance: TOFACITINIB CITRATE
     Indication: RHEUMATOID ARTHRITIS
     Dosage: 5 MG, 2X/DAY
     Route: 048
     Dates: start: 201601
  10. LASIX [Concomitant]
     Active Substance: FUROSEMIDE
     Indication: PERIPHERAL SWELLING
     Dosage: 40 MG, 1X/DAY; (1 IN 1 D)
     Dates: start: 201608
  11. OXYCODONE HYDROCHLORIDE. [Concomitant]
     Active Substance: OXYCODONE HYDROCHLORIDE
     Indication: PAIN
     Dosage: 5 MG TABLETS, AS NEEDED (5MG FOUR TABLETS A DAY AS NEEDED)
  12. OXYCODONE HYDROCHLORIDE. [Concomitant]
     Active Substance: OXYCODONE HYDROCHLORIDE
     Dosage: 20 MG, 1X/DAY; (4 IN 1 D)
     Dates: start: 2013
  13. CARAFATE [Concomitant]
     Active Substance: SUCRALFATE
     Dosage: AS NEEDED (AS REQUIRED)
  14. CYMBALTA [Concomitant]
     Active Substance: DULOXETINE HYDROCHLORIDE
     Indication: PAIN
     Dosage: 60 MG, 1X/DAY; (1 IN 1 D)
     Dates: start: 2013
  15. ASPIRIN. [Concomitant]
     Active Substance: ASPIRIN
     Dosage: 81 MG, 1X/DAY

REACTIONS (16)
  - Pain in extremity [Not Recovered/Not Resolved]
  - Condition aggravated [Unknown]
  - Malaise [Unknown]
  - Drug hypersensitivity [Unknown]
  - Haemarthrosis [Unknown]
  - Fall [Not Recovered/Not Resolved]
  - Pain in extremity [Unknown]
  - Drug ineffective [Unknown]
  - Foot fracture [Unknown]
  - Spinal fracture [Unknown]
  - Mental disorder [Unknown]
  - Impaired healing [Unknown]
  - Arthralgia [Unknown]
  - Secretion discharge [Unknown]
  - Intervertebral disc degeneration [Not Recovered/Not Resolved]
  - Blood blister [Unknown]

NARRATIVE: CASE EVENT DATE: 2016
